FAERS Safety Report 9208762 (Version 1)
Quarter: 2013Q2

REPORT INFORMATION
  Report Type: Spontaneous
  Country: US (occurrence: US)
  Receive Date: 20130404
  Receipt Date: 20130404
  Transmission Date: 20140414
  Serious: No
  Sender: FDA-Public Use
  Company Number: US-PFIZER INC-2013103237

PATIENT
  Age: 52 Year
  Sex: Male
  Weight: 72.56 kg

DRUGS (2)
  1. NARDIL [Suspect]
     Indication: DEPRESSION
     Dosage: 50 MG, 4X/DAY
     Dates: start: 2008
  2. LAMICTAL [Concomitant]
     Indication: DEPRESSION
     Dosage: 100 MG, 2X/DAY

REACTIONS (1)
  - Nasopharyngitis [Not Recovered/Not Resolved]
